FAERS Safety Report 20113774 (Version 4)
Quarter: 2022Q1

REPORT INFORMATION
  Report Type: Spontaneous
  Country: FR (occurrence: FR)
  Receive Date: 20211125
  Receipt Date: 20220103
  Transmission Date: 20220423
  Serious: Yes (Hospitalization, Other)
  Sender: FDA-Public Use
  Company Number: FR-NOVARTISPH-CHNY2008FR01159

PATIENT
  Age: 37 Year
  Sex: Female

DRUGS (8)
  1. IBUPROFEN [Suspect]
     Active Substance: IBUPROFEN
     Indication: Pharyngitis
     Dosage: UNK (NOT REPORTED)
     Route: 065
     Dates: start: 20050822, end: 20050901
  2. IBUPROFEN [Suspect]
     Active Substance: IBUPROFEN
     Indication: Conjunctivitis
     Dosage: UNK
     Route: 065
     Dates: start: 20050901
  3. IBUPROFEN [Suspect]
     Active Substance: IBUPROFEN
     Indication: Pyrexia
  4. AMOXICILLIN [Suspect]
     Active Substance: AMOXICILLIN
     Indication: Pharyngitis
     Dosage: UNK (NOT REPORTED)
     Route: 065
     Dates: start: 20050822, end: 20050826
  5. AMOXICILLIN [Suspect]
     Active Substance: AMOXICILLIN
     Indication: Conjunctivitis
  6. AMOXICILLIN [Suspect]
     Active Substance: AMOXICILLIN
     Indication: Pyrexia
  7. ETHINYL ESTRADIOL\LEVONORGESTREL [Concomitant]
     Active Substance: ETHINYL ESTRADIOL\LEVONORGESTREL
     Indication: Oral contraception
     Dosage: UNK
     Route: 048
  8. EUGYNON [Concomitant]
     Indication: Contraception
     Dosage: UNK
     Route: 048

REACTIONS (19)
  - Hepatitis cholestatic [Recovered/Resolved]
  - Jaundice [Recovered/Resolved]
  - Chromaturia [Recovered/Resolved]
  - Stevens-Johnson syndrome [Recovered/Resolved with Sequelae]
  - Rash pruritic [Recovered/Resolved]
  - Rash [Recovered/Resolved]
  - Eye pain [Unknown]
  - Visual acuity reduced [Unknown]
  - Keratitis [Recovering/Resolving]
  - Blepharitis [Unknown]
  - Photophobia [Unknown]
  - Erythema [Recovered/Resolved]
  - Dermatitis bullous [Recovered/Resolved]
  - Ulcerative keratitis [Recovering/Resolving]
  - Lymphadenopathy [Unknown]
  - Lymph node pain [Unknown]
  - Oral mucosa erosion [Recovered/Resolved]
  - Genital erosion [Recovered/Resolved]
  - Rash maculo-papular [Recovered/Resolved]

NARRATIVE: CASE EVENT DATE: 20050101
